FAERS Safety Report 10994535 (Version 2)
Quarter: 2015Q2

REPORT INFORMATION
  Report Type: Spontaneous
  Country: GB (occurrence: GB)
  Receive Date: 20150407
  Receipt Date: 20150511
  Transmission Date: 20150821
  Serious: Yes (Other)
  Sender: FDA-Public Use
  Company Number: GB-PFIZER INC-2015040521

PATIENT
  Age: 11 Month
  Sex: Male
  Weight: 7.95 kg

DRUGS (5)
  1. REFACTO AF [Suspect]
     Active Substance: ANTIHEMOPHILIC FACTOR, HUMAN RECOMBINANT RESIDUES 743-1636 DELETED
     Dosage: 500 IU, 2X/DAY
     Dates: start: 20140707, end: 20140709
  2. REFACTO AF [Suspect]
     Active Substance: ANTIHEMOPHILIC FACTOR, HUMAN RECOMBINANT RESIDUES 743-1636 DELETED
     Dosage: 500 IU, 3X/DAY
     Dates: start: 20140703, end: 20140707
  3. REFACTO AF [Suspect]
     Active Substance: ANTIHEMOPHILIC FACTOR, HUMAN RECOMBINANT RESIDUES 743-1636 DELETED
     Dosage: 1000 IU, 2X/DAY
     Dates: start: 20140709
  4. REFACTO AF [Suspect]
     Active Substance: ANTIHEMOPHILIC FACTOR, HUMAN RECOMBINANT RESIDUES 743-1636 DELETED
     Dosage: 500 IU, 2X/DAY
     Route: 042
     Dates: start: 20140615, end: 20140630
  5. REFACTO AF [Suspect]
     Active Substance: ANTIHEMOPHILIC FACTOR, HUMAN RECOMBINANT RESIDUES 743-1636 DELETED
     Dosage: 500 IU, 1X/DAY
     Dates: start: 20140630, end: 20140703

REACTIONS (1)
  - Factor VIII inhibition [Not Recovered/Not Resolved]

NARRATIVE: CASE EVENT DATE: 20140707
